FAERS Safety Report 6535810-8 (Version None)
Quarter: 2010Q1

REPORT INFORMATION
  Report Type: 
  Country: None (occurrence: None)
  Receive Date: 20100106
  Receipt Date: 20091215
  Transmission Date: 20100710
  Serious: Yes (Death)
  Sender: FDA-Public Use
  Company Number: OSCN-NO-0903S-0171

PATIENT
  Age: 47 Year
  Sex: Male
  Weight: 55 kg

DRUGS (9)
  1. OMNISCAN [Suspect]
     Indication: DRUG USE FOR UNKNOWN INDICATION
     Dosage: 10 ML, SINGLE DOSE, I.V.
     Route: 042
     Dates: start: 20020430, end: 20020430
  2. GADOLINIUM (UNSPECIFIED) [Suspect]
     Indication: DRUG USE FOR UNKNOWN INDICATION
     Dosage: NR, SINGLE DOSE, I.V., NR, SINGLE DOSE, I.V.
     Route: 042
     Dates: start: 20020121, end: 20020121
  3. GADOLINIUM (UNSPECIFIED) [Suspect]
     Indication: DRUG USE FOR UNKNOWN INDICATION
     Dosage: NR, SINGLE DOSE, I.V., NR, SINGLE DOSE, I.V.
     Route: 042
     Dates: start: 20030807, end: 20030807
  4. METOPROLOL SUCCINATE (SELO-ZOK) [Concomitant]
  5. LOSARTAN POTASSION (COZAAR) [Concomitant]
  6. FUROSEMIDE (DIURAL) [Concomitant]
  7. CALCIUM CARBONATE [Concomitant]
  8. ACETYLSALICYLIC ACID (MAGNYL) [Concomitant]
  9. INSULIN HUMAN (MIXTARD) [Concomitant]

REACTIONS (24)
  - ACUTE MYOCARDIAL INFARCTION [None]
  - ATELECTASIS [None]
  - BRONCHOPNEUMONIA [None]
  - CARDIAC ARREST [None]
  - CARDIOPULMONARY FAILURE [None]
  - CHOLESTASIS [None]
  - GANGRENE [None]
  - HAEMODIALYSIS [None]
  - HEPATIC FAILURE [None]
  - HEPATITIS TOXIC [None]
  - HYDROTHORAX [None]
  - HYPOAESTHESIA [None]
  - LIVER DISORDER [None]
  - MULTI-ORGAN FAILURE [None]
  - NEPHROGENIC SYSTEMIC FIBROSIS [None]
  - NEPHROSCLEROSIS [None]
  - PARAESTHESIA [None]
  - PULMONARY CONGESTION [None]
  - PULMONARY OEDEMA [None]
  - RENAL ATROPHY [None]
  - RENAL FAILURE [None]
  - SEPSIS [None]
  - SKIN ULCER [None]
  - TOE AMPUTATION [None]
